FAERS Safety Report 17532521 (Version 1)
Quarter: 2020Q1

REPORT INFORMATION
  Report Type: Spontaneous
  Country: NL (occurrence: US)
  Receive Date: 20200312
  Receipt Date: 20200312
  Transmission Date: 20200409
  Serious: Yes (Other)
  Sender: FDA-Public Use
  Company Number: NVSC2020US067616

PATIENT
  Age: 44 Year
  Sex: Female

DRUGS (1)
  1. ACETAMINOPHEN (PARACETAMOL) [Suspect]
     Active Substance: ACETAMINOPHEN
     Indication: PRODUCT USED FOR UNKNOWN INDICATION
     Dosage: 50 G
     Route: 048

REACTIONS (5)
  - Aspartate aminotransferase increased [Unknown]
  - Glutamate dehydrogenase increased [Unknown]
  - Alanine aminotransferase increased [Unknown]
  - Overdose [Unknown]
  - Acute hepatic failure [Unknown]
